FAERS Safety Report 10145281 (Version 2)
Quarter: 2014Q2

REPORT INFORMATION
  Report Type: Spontaneous
  Country: US (occurrence: US)
  Receive Date: 20140501
  Receipt Date: 20140519
  Transmission Date: 20141212
  Serious: No
  Sender: FDA-Public Use
  Company Number: US-BIOGENIDEC-2014BI037474

PATIENT
  Age: 62 Year
  Sex: Female

DRUGS (2)
  1. TECFIDERA [Suspect]
     Indication: RELAPSING-REMITTING MULTIPLE SCLEROSIS
     Route: 048
     Dates: start: 201403
  2. TECFIDERA [Suspect]
     Indication: RELAPSING-REMITTING MULTIPLE SCLEROSIS

REACTIONS (16)
  - Constipation [Not Recovered/Not Resolved]
  - Tremor [Not Recovered/Not Resolved]
  - Chills [Not Recovered/Not Resolved]
  - Feeling cold [Not Recovered/Not Resolved]
  - Abdominal distension [Not Recovered/Not Resolved]
  - Pain [Not Recovered/Not Resolved]
  - Fatigue [Not Recovered/Not Resolved]
  - Pain in extremity [Not Recovered/Not Resolved]
  - Dysgeusia [Not Recovered/Not Resolved]
  - Asthenia [Not Recovered/Not Resolved]
  - Gastrooesophageal reflux disease [Not Recovered/Not Resolved]
  - Post procedural complication [Not Recovered/Not Resolved]
  - Abdominal pain upper [Not Recovered/Not Resolved]
  - Feeling hot [Not Recovered/Not Resolved]
  - Flushing [Recovered/Resolved]
  - Pruritus [Recovered/Resolved]
